FAERS Safety Report 15460861 (Version 8)
Quarter: 2019Q2

REPORT INFORMATION
  Report Type: Report from Study
  Country: US (occurrence: US)
  Receive Date: 20181003
  Receipt Date: 20190613
  Transmission Date: 20190711
  Serious: Yes (Hospitalization, Other)
  Sender: FDA-Public Use
  Company Number: US-ACTELION-A-NJ2017-148287

PATIENT
  Age: 70 Year
  Sex: Female
  Weight: 108.84 kg

DRUGS (6)
  1. ADEMPAS [Suspect]
     Active Substance: RIOCIGUAT
     Dosage: 2.5 MG, TID
     Route: 065
  2. ADEMPAS [Suspect]
     Active Substance: RIOCIGUAT
     Indication: PRODUCT USED FOR UNKNOWN INDICATION
     Dosage: 0.5 MG, UNK
     Route: 065
  3. ELIQUIS [Concomitant]
     Active Substance: APIXABAN
  4. ADCIRCA [Concomitant]
     Active Substance: TADALAFIL
  5. UPTRAVI [Suspect]
     Active Substance: SELEXIPAG
     Indication: PULMONARY HYPERTENSION
     Dosage: UNK
     Route: 048
  6. OPSUMIT [Suspect]
     Active Substance: MACITENTAN
     Indication: PULMONARY HYPERTENSION
     Dosage: 10 MG, QD
     Route: 048
     Dates: start: 20160112

REACTIONS (18)
  - Atrial fibrillation [Recovering/Resolving]
  - Dyspnoea [Unknown]
  - Loss of personal independence in daily activities [Unknown]
  - Chest discomfort [Unknown]
  - Cardioversion [Unknown]
  - Palpitations [Unknown]
  - Oedema [Unknown]
  - Condition aggravated [Unknown]
  - Peripheral swelling [Unknown]
  - Dizziness [Unknown]
  - Fatigue [Unknown]
  - Diarrhoea [Unknown]
  - Dyspnoea exertional [Not Recovered/Not Resolved]
  - Stress [Unknown]
  - Atrial flutter [Recovering/Resolving]
  - Asthenia [Unknown]
  - Malaise [Unknown]
  - Cardiac ablation [Unknown]

NARRATIVE: CASE EVENT DATE: 201805
